FAERS Safety Report 7393847-3 (Version None)
Quarter: 2011Q1

REPORT INFORMATION
  Report Type: 
  Country: None (occurrence: None)
  Receive Date: 20110330
  Receipt Date: 20110330
  Transmission Date: 20110831
  Serious: No
  Sender: FDA-Public Use
  Company Number: None

PATIENT
  Age: 60 Year
  Sex: Female
  Weight: 74.3899 kg

DRUGS (5)
  1. OMEPRAZOLE [Suspect]
     Indication: FAECES DISCOLOURED
     Dosage: 1 CAPSULE BY MOUTH EVERY MORNI 1 DAILY PO
     Route: 048
     Dates: start: 20110315, end: 20110326
  2. OMEPRAZOLE [Suspect]
     Indication: NAUSEA
     Dosage: 1 CAPSULE BY MOUTH EVERY MORNI 1 DAILY PO
     Route: 048
     Dates: start: 20110315, end: 20110326
  3. OMEPRAZOLE [Suspect]
     Indication: ABDOMINAL PAIN
     Dosage: 1 CAPSULE BY MOUTH EVERY MORNI 1 DAILY PO
     Route: 048
     Dates: start: 20110315, end: 20110326
  4. OMEPRAZOLE [Suspect]
     Indication: GASTROINTESTINAL DISORDER
     Dosage: 1 CAPSULE BY MOUTH EVERY MORNI 1 DAILY PO
     Route: 048
     Dates: start: 20110315, end: 20110326
  5. OMEPRAZOLE [Suspect]
     Indication: VOMITING
     Dosage: 1 CAPSULE BY MOUTH EVERY MORNI 1 DAILY PO
     Route: 048
     Dates: start: 20110315, end: 20110326

REACTIONS (6)
  - FATIGUE [None]
  - MUSCULOSKELETAL STIFFNESS [None]
  - ATROPHY [None]
  - GROIN PAIN [None]
  - ASTHENIA [None]
  - CHEST PAIN [None]
